FAERS Safety Report 20977246 (Version 1)
Quarter: 2022Q2

REPORT INFORMATION
  Report Type: Spontaneous
  Country: CN (occurrence: CN)
  Receive Date: 20220617
  Receipt Date: 20220617
  Transmission Date: 20220721
  Serious: Yes (Other)
  Sender: FDA-Public Use
  Company Number: CN-NAPPMUNDI-GBR-2022-0098883

PATIENT
  Age: 66 Year
  Sex: Male
  Weight: 60 kg

DRUGS (5)
  1. OXYCODONE HYDROCHLORIDE [Suspect]
     Active Substance: OXYCODONE HYDROCHLORIDE
     Indication: Analgesic therapy
     Dosage: 160 MILLIGRAM, Q12H
     Route: 048
     Dates: start: 20220505, end: 20220511
  2. OXYCODONE HYDROCHLORIDE [Suspect]
     Active Substance: OXYCODONE HYDROCHLORIDE
     Dosage: 120 MILLIGRAM, Q12H
     Route: 048
     Dates: start: 20220503, end: 20220505
  3. OXYCODONE HYDROCHLORIDE [Suspect]
     Active Substance: OXYCODONE HYDROCHLORIDE
     Dosage: 160 MILLIGRAM, Q12H
     Route: 048
  4. MORPHINE [Suspect]
     Active Substance: MORPHINE
     Indication: Product used for unknown indication
     Dosage: 30 MG, Q4H
     Route: 042
     Dates: start: 20220502, end: 20220503
  5. MORPHINE [Concomitant]
     Active Substance: MORPHINE
     Indication: Pain
     Dosage: 30 MILLIGRAM, Q4H
     Route: 042
     Dates: start: 20220502, end: 20220503

REACTIONS (5)
  - Loss of consciousness [Recovering/Resolving]
  - Dysphoria [Recovering/Resolving]
  - Disorganised speech [Recovering/Resolving]
  - Euphoric mood [Recovering/Resolving]
  - Inadequate analgesia [Recovering/Resolving]

NARRATIVE: CASE EVENT DATE: 20220101
